FAERS Safety Report 4444982-0 (Version None)
Quarter: 2004Q3

REPORT INFORMATION
  Report Type: 
  Country: None (occurrence: None)
  Receive Date: 20040908
  Receipt Date: 20040908
  Transmission Date: 20050211
  Serious: Yes (Life-Threatening, Other)
  Sender: FDA-Public Use
  Company Number: None

PATIENT
  Age: 48 Year
  Sex: Female
  Weight: 77.1115 kg

DRUGS (1)
  1. BEXTRA [Suspect]
     Indication: LIMB INJURY
     Dosage: 20 MG BID BUT HAD ONLY BEEN ~4 OVER = 5 DAYS
     Dates: start: 20040821, end: 20040829

REACTIONS (3)
  - CONTRAINDICATION TO MEDICAL TREATMENT [None]
  - DERMATITIS ALLERGIC [None]
  - STEVENS-JOHNSON SYNDROME [None]
